FAERS Safety Report 14278124 (Version 12)
Quarter: 2018Q3

REPORT INFORMATION
  Report Type: Spontaneous
  Country: DE (occurrence: DE)
  Receive Date: 20171212
  Receipt Date: 20180810
  Transmission Date: 20181010
  Serious: Yes (Hospitalization, Other)
  Sender: FDA-Public Use
  Company Number: DE-TEVA-2017-DE-829526

PATIENT
  Sex: Male

DRUGS (20)
  1. DOXORUBICIN [Suspect]
     Active Substance: DOXORUBICIN
     Route: 042
     Dates: start: 20171012, end: 20171012
  2. PEGFILGRASTIM [Suspect]
     Active Substance: PEGFILGRASTIM
     Indication: B-CELL LYMPHOMA
     Dosage: 6 MILLIGRAM DAILY; 6 MG, QD
     Route: 058
     Dates: start: 20171111, end: 20171111
  3. CYCLOPHOSPHAMIDE. [Suspect]
     Active Substance: CYCLOPHOSPHAMIDE
     Route: 042
     Dates: start: 20171012, end: 20171012
  4. ASPIRIN. [Concomitant]
     Active Substance: ASPIRIN
     Indication: PROPHYLAXIS
     Dosage: 100 MILLIGRAM DAILY; 100 MG, QD
     Route: 048
     Dates: start: 20171010
  5. DOXORUBICIN [Suspect]
     Active Substance: DOXORUBICIN
     Indication: B-CELL LYMPHOMA
     Dosage: 95 MILLIGRAM DAILY; 95 MG, UNK (1 TIME A DAY FOR 1 DAY)
     Route: 065
     Dates: start: 20171108, end: 20171108
  6. PREDNISOLONE. [Suspect]
     Active Substance: PREDNISOLONE
     Dosage: 500 MG, QD DATE OF LAST DOSE OF A PRIOR TO SERIOUS ADVERSE EVENT (SAE): 07/DEC/2017
     Route: 042
     Dates: start: 20171012, end: 20171012
  7. ZOPICLONE [Concomitant]
     Active Substance: ZOPICLONE
     Indication: SLEEP DISORDER THERAPY
     Dosage: 7.5 MILLIGRAM DAILY; 7.5 MG, QD
     Route: 048
     Dates: start: 20171010
  8. CYCLOPHOSPHAMIDE. [Suspect]
     Active Substance: CYCLOPHOSPHAMIDE
     Indication: B-CELL LYMPHOMA
     Dosage: 1400 MILLIGRAM DAILY; 1400 MG, QD
     Route: 042
     Dates: start: 20171108, end: 20171108
  9. VINCRISTINE [Suspect]
     Active Substance: VINCRISTINE
     Dosage: 1 UNK,(DATE OF LAST DOSE OF A PRIOR TO SERIOUS ADVERSE EVENT )
     Route: 042
     Dates: start: 20171012, end: 20171012
  10. SIMVASTATIN. [Concomitant]
     Active Substance: SIMVASTATIN
     Indication: HYPERCHOLESTEROLAEMIA
     Dosage: 20 MILLIGRAM DAILY; 20 MG, QD
     Route: 048
     Dates: start: 20171010
  11. VINCRISTINE [Suspect]
     Active Substance: VINCRISTINE
     Indication: B-CELL LYMPHOMA
     Dosage: 3.12 MILLIGRAM DAILY; 3.12 MG, QD
     Route: 042
     Dates: start: 20171012, end: 20171012
  12. PREDNISOLONE. [Suspect]
     Active Substance: PREDNISOLONE
     Indication: B-CELL LYMPHOMA
     Dosage: 500 MILLIGRAM DAILY; 500 MG, QD (1?0?0, FOR 5 DAYS)
     Route: 048
     Dates: start: 20171107, end: 20171111
  13. PEGFILGRASTIM [Suspect]
     Active Substance: PEGFILGRASTIM
     Dosage: 6 MG, QD
     Route: 042
     Dates: start: 20171015, end: 20171015
  14. TAMSULOSIN [Concomitant]
     Active Substance: TAMSULOSIN
     Dosage: 4 MG QD
     Route: 048
     Dates: start: 20171010
  15. DOXORUBICIN [Suspect]
     Active Substance: DOXORUBICIN
     Dosage: 1 DF, QD DATE OF LAST DOSE OF A PRIOR TO SERIOUS ADVERSE EVENT (SAE): 07/DEC/2017
     Route: 042
     Dates: start: 20171012, end: 20171012
  16. TAMSULOSIN [Concomitant]
     Active Substance: TAMSULOSIN
     Indication: BENIGN PROSTATIC HYPERPLASIA
     Dosage: 4 MILLIGRAM DAILY; 20 MG, QD
     Route: 065
     Dates: start: 20171010
  17. RITUXIMAB. [Suspect]
     Active Substance: RITUXIMAB
     Indication: B-CELL LYMPHOMA
     Dosage: 660 MG, UNK (1 TIME A DAY FOR 1 DAY). CYCLE NUMBER: 3, DATE LAST PRIOR TO SAE 07?NOV?2017
     Route: 042
     Dates: start: 20171107, end: 20171107
  18. CYCLOPHOSPHAMIDE. [Suspect]
     Active Substance: CYCLOPHOSPHAMIDE
     Route: 042
     Dates: start: 20171012, end: 20171012
  19. RITUXIMAB. [Suspect]
     Active Substance: RITUXIMAB
     Route: 042
     Dates: start: 20171011, end: 20171011
  20. LISINOPRIL. [Concomitant]
     Active Substance: LISINOPRIL
     Indication: ANGIOTENSIN CONVERTING ENZYME DECREASED
     Dosage: 20 MILLIGRAM DAILY; 20 MG, QD
     Route: 048
     Dates: start: 20171010

REACTIONS (4)
  - Lung infection [Recovered/Resolved]
  - Anaemia [Recovered/Resolved]
  - Acute kidney injury [Recovered/Resolved]
  - Bronchitis [Recovered/Resolved]

NARRATIVE: CASE EVENT DATE: 20171024
